FAERS Safety Report 6295806-0 (Version None)
Quarter: 2009Q3

REPORT INFORMATION
  Report Type: 
  Country: None (occurrence: None)
  Receive Date: 20090803
  Receipt Date: 20090803
  Transmission Date: 20100115
  Serious: Yes (Other)
  Sender: FDA-Public Use
  Company Number: None

PATIENT
  Age: 48 Year
  Sex: Female
  Weight: 74.8435 kg

DRUGS (1)
  1. CHANTIX [Suspect]
     Indication: SMOKING CESSATION THERAPY
     Dosage: ODD ROUTINE PO
     Route: 048
     Dates: start: 20071227, end: 20080227

REACTIONS (6)
  - ABNORMAL BEHAVIOUR [None]
  - BANKRUPTCY [None]
  - COMMUNICATION DISORDER [None]
  - DIVORCED [None]
  - FEELING ABNORMAL [None]
  - SOCIAL AVOIDANT BEHAVIOUR [None]
